FAERS Safety Report 9111528 (Version 1)
Quarter: 2013Q1

REPORT INFORMATION
  Report Type: Spontaneous
  Country: US (occurrence: US)
  Receive Date: 20130219
  Receipt Date: 20130219
  Transmission Date: 20140127
  Serious: Yes (Hospitalization)
  Sender: FDA-Public Use
  Company Number: US-BRISTOL-MYERS SQUIBB COMPANY-16677247

PATIENT
  Age: 57 Year
  Sex: Female
  Weight: 48.98 kg

DRUGS (1)
  1. ORENCIA [Suspect]
     Indication: RHEUMATOID ARTHRITIS
     Dosage: INF: 2; STARTED A MONTH AGO
     Route: 042

REACTIONS (2)
  - Infection [Recovered/Resolved]
  - Rheumatoid arthritis [Not Recovered/Not Resolved]
